FAERS Safety Report 5717141-9 (Version None)
Quarter: 2008Q2

REPORT INFORMATION
  Report Type: 
  Country: None (occurrence: None)
  Receive Date: 20080423
  Receipt Date: 20080415
  Transmission Date: 20081010
  Serious: Yes (Other)
  Sender: FDA-Public Use
  Company Number: 2007332591

PATIENT
  Age: 40 Year
  Sex: Female

DRUGS (1)
  1. LISTERINE AGENT COOL BLUE BUBBLE BLAST (NO ACTIVE^ INGREDIENT) [Suspect]
     Indication: DENTAL DISORDER PROPHYLAXIS
     Dosage: 10 ML 1 TIME PER DAY (1 IN 1 D),ORAL
     Route: 048
     Dates: start: 20070301, end: 20070401

REACTIONS (4)
  - GINGIVAL BLEEDING [None]
  - GINGIVAL ULCERATION [None]
  - PHARMACEUTICAL PRODUCT COMPLAINT [None]
  - POOR QUALITY DRUG ADMINISTERED [None]
